FAERS Safety Report 23229032 (Version 1)
Quarter: 2023Q4

REPORT INFORMATION
  Report Type: Report from Study
  Country: GR (occurrence: GR)
  Receive Date: 20231126
  Receipt Date: 20231126
  Transmission Date: 20240110
  Serious: Yes (Death, Hospitalization)
  Sender: FDA-Public Use
  Company Number: GR-ABBVIE-22K-066-4528022-00

PATIENT
  Age: 71 Year
  Sex: Female
  Weight: 58 kg

DRUGS (10)
  1. CARBIDOPA\LEVODOPA [Suspect]
     Active Substance: CARBIDOPA\LEVODOPA
     Indication: Parkinson^s disease
     Dosage: MORNING DOSE: 2.9 ML CONTINUOUS RATE: 2.1 ML/H EXTRA DOSE: 0.8 ML
     Route: 050
     Dates: start: 20180316
  2. CARBIDOPA\LEVODOPA [Suspect]
     Active Substance: CARBIDOPA\LEVODOPA
     Dosage: MORNING DOSE: 2.0 ML CONTINUOUS RATE: 1.2 ML/H EXTRA DOSE: 0.8 ML
     Route: 050
  3. RIVETAL [Concomitant]
     Indication: Dementia
     Route: 048
     Dates: start: 20190520
  4. MEMOMAX [Concomitant]
     Indication: Depression
     Route: 048
     Dates: start: 20190520
  5. ORBIMAG [Concomitant]
     Indication: Product used for unknown indication
     Route: 048
  6. FOLIC ACID [Concomitant]
     Active Substance: FOLIC ACID
     Indication: Product used for unknown indication
     Dosage: 2-3 TIMES PER WEEK
     Route: 048
  7. Calcioral [Concomitant]
     Indication: Product used for unknown indication
     Route: 048
  8. LEVOTHYROXINE [Concomitant]
     Active Substance: LEVOTHYROXINE
     Indication: Product used for unknown indication
     Route: 048
  9. VITAMIN D [Concomitant]
     Active Substance: VITAMIN D NOS
     Indication: Product used for unknown indication
     Route: 048
  10. VIOFER [Concomitant]
     Indication: Product used for unknown indication
     Route: 048

REACTIONS (7)
  - Death [Fatal]
  - Parkinson^s disease [Not Recovered/Not Resolved]
  - Speech disorder [Not Recovered/Not Resolved]
  - Communication disorder [Unknown]
  - Dysphagia [Not Recovered/Not Resolved]
  - Unevaluable event [Unknown]
  - Mastication disorder [Not Recovered/Not Resolved]

NARRATIVE: CASE EVENT DATE: 20231101
